FAERS Safety Report 7806809-6 (Version None)
Quarter: 2011Q4

REPORT INFORMATION
  Report Type: 
  Country: None (occurrence: None)
  Receive Date: 20111011
  Receipt Date: 20111006
  Transmission Date: 20120403
  Serious: Yes (Other)
  Sender: FDA-Public Use
  Company Number: US-PFIZER INC-2011239482

PATIENT
  Sex: Male

DRUGS (1)
  1. SULFASALAZINE [Suspect]
     Indication: ANKYLOSING SPONDYLITIS
     Dosage: UNK

REACTIONS (3)
  - TOOTH DISCOLOURATION [None]
  - TONGUE DISCOLOURATION [None]
  - SKIN DISCOLOURATION [None]
